FAERS Safety Report 17031621 (Version 2)
Quarter: 2019Q4

REPORT INFORMATION
  Report Type: Spontaneous
  Country: BE (occurrence: BE)
  Receive Date: 20191114
  Receipt Date: 20191121
  Transmission Date: 20200122
  Serious: Yes (Other)
  Sender: FDA-Public Use
  Company Number: BE-OCTA-LIT07019BE

PATIENT
  Age: 29 Year
  Sex: Female

DRUGS (4)
  1. ALBUMINE HUMAINE CR 20% 100ML [Suspect]
     Active Substance: ALBUMIN HUMAN
     Indication: OVARIAN HYPERSTIMULATION SYNDROME
     Route: 042
  2. PREGNYL [Suspect]
     Active Substance: CHORIOGONADOTROPIN ALFA
     Indication: OVULATION INDUCTION
  3. GONAL-F [Suspect]
     Active Substance: FOLLITROPIN
     Indication: PRODUCT USED FOR UNKNOWN INDICATION
  4. CETROTIDE [Suspect]
     Active Substance: CETRORELIX ACETATE
     Indication: PRODUCT USED FOR UNKNOWN INDICATION

REACTIONS (2)
  - Condition aggravated [Unknown]
  - Ovarian hyperstimulation syndrome [Unknown]
